FAERS Safety Report 11792495 (Version 3)
Quarter: 2015Q4

REPORT INFORMATION
  Report Type: Report from Study
  Country: CA (occurrence: CA)
  Receive Date: 20151202
  Receipt Date: 20151222
  Transmission Date: 20160305
  Serious: Yes (Other)
  Sender: FDA-Public Use
  Company Number: CA-ROCHE-ITM201505IM016985

PATIENT
  Age: 83 Year
  Sex: Female
  Weight: 79.8 kg

DRUGS (28)
  1. ESBRIET [Suspect]
     Active Substance: PIRFENIDONE
     Route: 048
  2. ESBRIET [Suspect]
     Active Substance: PIRFENIDONE
     Route: 048
     Dates: start: 201505
  3. ESBRIET [Suspect]
     Active Substance: PIRFENIDONE
     Dosage: 534 MG - 534 MG - 267 MG
     Route: 048
     Dates: start: 20150717, end: 201507
  4. ESBRIET [Suspect]
     Active Substance: PIRFENIDONE
     Dosage: 534 MG - 534 MG - 267 MG
     Route: 048
     Dates: start: 20151204
  5. ACETYLCYSTEINE. [Concomitant]
     Active Substance: ACETYLCYSTEINE
  6. VITAMIN B12 [Concomitant]
     Active Substance: CYANOCOBALAMIN
  7. ESBRIET [Suspect]
     Active Substance: PIRFENIDONE
     Route: 048
     Dates: start: 2015
  8. ASA [Concomitant]
     Active Substance: ASPIRIN
     Route: 065
  9. ESBRIET [Suspect]
     Active Substance: PIRFENIDONE
     Indication: IDIOPATHIC PULMONARY FIBROSIS
     Route: 048
     Dates: start: 20140512
  10. ESBRIET [Suspect]
     Active Substance: PIRFENIDONE
     Route: 048
     Dates: start: 2015
  11. ESBRIET [Suspect]
     Active Substance: PIRFENIDONE
     Route: 048
     Dates: start: 20140519
  12. ESBRIET [Suspect]
     Active Substance: PIRFENIDONE
     Dosage: 534 MG - 801 MG - 801 MG
     Route: 048
     Dates: start: 20140602
  13. ESBRIET [Suspect]
     Active Substance: PIRFENIDONE
     Dosage: 534 MG - 267 MG - 267 MG
     Route: 048
     Dates: start: 2015
  14. ESBRIET [Suspect]
     Active Substance: PIRFENIDONE
     Dosage: 534 MG - 534 MG - 801 MG
     Route: 048
     Dates: start: 201508
  15. RAMIPRIL. [Concomitant]
     Active Substance: RAMIPRIL
  16. ESBRIET [Suspect]
     Active Substance: PIRFENIDONE
     Route: 048
  17. ESBRIET [Suspect]
     Active Substance: PIRFENIDONE
     Route: 048
     Dates: start: 2015
  18. ESBRIET [Suspect]
     Active Substance: PIRFENIDONE
     Route: 048
     Dates: start: 20140526
  19. ESBRIET [Suspect]
     Active Substance: PIRFENIDONE
     Route: 048
     Dates: start: 20140528
  20. ESBRIET [Suspect]
     Active Substance: PIRFENIDONE
     Dosage: 801 MG - 801 MG - 534 MG
     Route: 048
     Dates: start: 20140616, end: 20140917
  21. ESBRIET [Suspect]
     Active Substance: PIRFENIDONE
     Dosage: 801 MG - 534 MG - 534 MG
     Route: 048
     Dates: start: 20140928, end: 201505
  22. ESBRIET [Suspect]
     Active Substance: PIRFENIDONE
     Route: 048
     Dates: start: 2015
  23. ZENHALE [Concomitant]
     Active Substance: FORMOTEROL FUMARATE\MOMETASONE FUROATE
  24. ESBRIET [Suspect]
     Active Substance: PIRFENIDONE
     Route: 048
     Dates: start: 2015
  25. ESBRIET [Suspect]
     Active Substance: PIRFENIDONE
     Route: 048
     Dates: start: 2015
  26. CHLORTHALIDONE. [Concomitant]
     Active Substance: CHLORTHALIDONE
  27. VITAMIN C [Concomitant]
     Active Substance: ASCORBIC ACID
  28. OXYGEN. [Concomitant]
     Active Substance: OXYGEN

REACTIONS (5)
  - Cardiac failure [Not Recovered/Not Resolved]
  - Fatigue [Not Recovered/Not Resolved]
  - Asthenia [Not Recovered/Not Resolved]
  - Rash [Unknown]
  - Blood sodium decreased [Not Recovered/Not Resolved]

NARRATIVE: CASE EVENT DATE: 201505
